FAERS Safety Report 9050011 (Version 1)
Quarter: 2013Q1

REPORT INFORMATION
  Report Type: Spontaneous
  Country: US (occurrence: US)
  Receive Date: 20130205
  Receipt Date: 20130205
  Transmission Date: 20140127
  Serious: Yes (Other)
  Sender: FDA-Public Use
  Company Number: US-GLAXOSMITHKLINE-A0970243A

PATIENT
  Age: 57 Year
  Sex: Female

DRUGS (4)
  1. ARIXTRA [Suspect]
     Indication: MYELODYSPLASTIC SYNDROME
     Route: 058
     Dates: start: 2009
  2. SYNTHROID [Concomitant]
  3. PROVERA [Concomitant]
  4. EXJADE [Concomitant]

REACTIONS (1)
  - Wound haemorrhage [Unknown]
